FAERS Safety Report 7623292-4 (Version None)
Quarter: 2011Q3

REPORT INFORMATION
  Report Type: 
  Country: None (occurrence: None)
  Receive Date: 20110720
  Receipt Date: 20110712
  Transmission Date: 20111222
  Serious: Yes (Hospitalization, Congenital Anomaly, Other)
  Sender: FDA-Public Use
  Company Number: US-PFIZER INC-2011158560

PATIENT
  Sex: Female
  Weight: 3 kg

DRUGS (3)
  1. DIGOXIN [Concomitant]
     Dosage: UNK
     Route: 064
     Dates: start: 20060209
  2. PRENATAL VITAMINS [Concomitant]
     Dosage: UNK
     Route: 064
  3. EFFEXOR [Suspect]
     Indication: ANXIETY
     Dosage: 75 MG, UNK
     Route: 064
     Dates: start: 20050315

REACTIONS (15)
  - ATRIAL SEPTAL DEFECT [None]
  - PATENT DUCTUS ARTERIOSUS [None]
  - PERICARDIAL EFFUSION [None]
  - ATRIOVENTRICULAR BLOCK FIRST DEGREE [None]
  - WEIGHT DECREASED [None]
  - CARDIAC DISORDER [None]
  - SUPRAVENTRICULAR TACHYCARDIA [None]
  - COARCTATION OF THE AORTA [None]
  - CONGENITAL PULMONARY VALVE DISORDER [None]
  - GASTROOESOPHAGEAL REFLUX DISEASE [None]
  - MACROCEPHALY [None]
  - MATERNAL EXPOSURE DURING PREGNANCY [None]
  - TRICUSPID VALVE INCOMPETENCE [None]
  - DILATATION VENTRICULAR [None]
  - HYPERDYNAMIC LEFT VENTRICLE [None]
